FAERS Safety Report 7655409-X (Version None)
Quarter: 2011Q3

REPORT INFORMATION
  Report Type: 
  Country: None (occurrence: None)
  Receive Date: 20110729
  Receipt Date: 20110714
  Transmission Date: 20111222
  Serious: Yes (Death, Other)
  Sender: FDA-Public Use
  Company Number: 1000022010

PATIENT
  Age: 66 Year
  Sex: Female

DRUGS (4)
  1. MIRTAZAPINE [Suspect]
     Dosage: 15MG-39MG-45MG OVER A 7 WEEK PERIOD
  2. CITALOPRAM HYDROBROMIDE [Suspect]
     Dosage: 20 MG (20 MG, 1 IN 1 D), ORAL
     Route: 048
  3. LITHIUM CARBONATE [Suspect]
     Dosage: 600 MG (600 MG, 1 IN 1 D), FOR OVER 30 YEARS
  4. ACETYLSALICYLIC ACID SRT [Suspect]
     Dosage: OVERDOSE: ^MANY^, AMOUNT UNKNOWN

REACTIONS (7)
  - ANXIETY [None]
  - UNEVALUABLE EVENT [None]
  - SEROTONIN SYNDROME [None]
  - COMPLETED SUICIDE [None]
  - ASPHYXIA [None]
  - ACTIVITIES OF DAILY LIVING IMPAIRED [None]
  - AGITATION [None]
